FAERS Safety Report 5319914-3 (Version None)
Quarter: 2007Q2

REPORT INFORMATION
  Report Type: 
  Country: None (occurrence: None)
  Receive Date: 20070503
  Receipt Date: 20070425
  Transmission Date: 20071010
  Serious: Yes (Other)
  Sender: FDA-Public Use
  Company Number: 2007S1000120

PATIENT
  Age: 70 Year
  Sex: Male

DRUGS (4)
  1. SORIATANE [Suspect]
     Indication: PUSTULAR PSORIASIS
     Dosage: SEE IMAGE
     Route: 048
     Dates: start: 19980101, end: 20050801
  2. SORIATANE [Suspect]
     Indication: PUSTULAR PSORIASIS
     Dosage: SEE IMAGE
     Route: 048
     Dates: start: 20050101
  3. INDOMETHACIN [Concomitant]
  4. ALLOPURINOL [Concomitant]

REACTIONS (2)
  - SCOLIOSIS [None]
  - SPINAL OSTEOARTHRITIS [None]
